FAERS Safety Report 8561047-7 (Version None)
Quarter: 2012Q3

REPORT INFORMATION
  Report Type: 
  Country: None (occurrence: None)
  Receive Date: 20120802
  Receipt Date: 20111019
  Transmission Date: 20120928
  Serious: Yes (Other)
  Sender: FDA-Public Use
  Company Number: US-BRISTOL-MYERS SQUIBB COMPANY-16177347

PATIENT
  Age: 43 Year
  Sex: Male

DRUGS (2)
  1. REYATAZ [Suspect]
     Indication: HIV INFECTION
     Dosage: 1 DF=300/100 UNITS NOS
     Dates: start: 20110401, end: 20110701
  2. RITONAVIR [Suspect]
     Indication: HIV INFECTION
     Dates: start: 20110401

REACTIONS (1)
  - OCULAR ICTERUS [None]
